FAERS Safety Report 9163335 (Version 29)
Quarter: 2016Q3

REPORT INFORMATION
  Report Type: Spontaneous
  Country: CA (occurrence: CA)
  Receive Date: 20130314
  Receipt Date: 20160805
  Transmission Date: 20161109
  Serious: Yes (Death, Life-Threatening, Hospitalization, Other)
  Sender: FDA-Public Use
  Company Number: CA-ROCHE-1200985

PATIENT
  Age: 42 Year
  Sex: Female

DRUGS (13)
  1. XOLAIR [Suspect]
     Active Substance: OMALIZUMAB
     Route: 058
     Dates: start: 20140429
  2. XOLAIR [Suspect]
     Active Substance: OMALIZUMAB
     Route: 058
     Dates: start: 20150625
  3. XOLAIR [Suspect]
     Active Substance: OMALIZUMAB
     Route: 058
     Dates: start: 20140401
  4. VENTOLIN [Concomitant]
     Active Substance: ALBUTEROL SULFATE
     Dosage: UNK (4 TO 6 TIMES DAILY)
     Route: 065
  5. XOLAIR [Suspect]
     Active Substance: OMALIZUMAB
     Route: 058
     Dates: start: 20141016
  6. XOLAIR [Suspect]
     Active Substance: OMALIZUMAB
     Route: 058
     Dates: start: 20150205
  7. XOLAIR [Suspect]
     Active Substance: OMALIZUMAB
     Route: 058
     Dates: start: 20151216
  8. XOLAIR [Suspect]
     Active Substance: OMALIZUMAB
     Route: 058
     Dates: start: 20160217
  9. ADVAIR HFA [Concomitant]
     Active Substance: FLUTICASONE PROPIONATE\SALMETEROL XINAFOATE
     Route: 065
  10. SPIRIVA [Concomitant]
     Active Substance: TIOTROPIUM BROMIDE MONOHYDRATE
     Route: 065
  11. XOLAIR [Suspect]
     Active Substance: OMALIZUMAB
     Route: 058
     Dates: start: 20140207
  12. XOLAIR [Suspect]
     Active Substance: OMALIZUMAB
     Indication: ASTHMA
     Dosage: LAST DOSE AT 07/NOV/2013.
     Route: 058
     Dates: start: 20110815
  13. XOLAIR [Suspect]
     Active Substance: OMALIZUMAB
     Route: 058
     Dates: start: 20141211

REACTIONS (31)
  - Haemarthrosis [Unknown]
  - Emphysema [Unknown]
  - Localised infection [Unknown]
  - Malaise [Unknown]
  - Oxygen saturation decreased [Not Recovered/Not Resolved]
  - Oropharyngeal pain [Unknown]
  - Death [Fatal]
  - Fall [Unknown]
  - Papule [Unknown]
  - Wheezing [Unknown]
  - Bladder disorder [Recovered/Resolved]
  - Epistaxis [Recovered/Resolved]
  - Rib fracture [Unknown]
  - Pneumonia [Unknown]
  - Pelvic fracture [Unknown]
  - Dizziness [Unknown]
  - Lung disorder [Unknown]
  - Meniscus injury [Unknown]
  - Morbid thoughts [Unknown]
  - Dyspnoea at rest [Unknown]
  - Lung infection [Unknown]
  - Blood pressure systolic increased [Not Recovered/Not Resolved]
  - Heart rate increased [Not Recovered/Not Resolved]
  - Respiratory rate increased [Unknown]
  - Hypokinesia [Unknown]
  - Pallor [Unknown]
  - Ligament rupture [Unknown]
  - Gait disturbance [Not Recovered/Not Resolved]
  - Bronchitis [Recovered/Resolved]
  - Joint injury [Unknown]
  - Medical device discomfort [Unknown]

NARRATIVE: CASE EVENT DATE: 2012
